FAERS Safety Report 15815106 (Version 1)
Quarter: 2019Q1

REPORT INFORMATION
  Report Type: Spontaneous
  Country: US (occurrence: US)
  Receive Date: 20190112
  Receipt Date: 20190112
  Transmission Date: 20190417
  Serious: Yes (Life-Threatening, Hospitalization, Other)
  Sender: FDA-Public Use
  Company Number: US-AMGEN-USASP2019002133

PATIENT
  Age: 62 Year
  Sex: Female
  Weight: 104.3 kg

DRUGS (5)
  1. XGEVA [Suspect]
     Active Substance: DENOSUMAB
     Indication: BREAST CANCER METASTATIC
     Dosage: UNK
     Route: 065
  2. IBRANCE [Suspect]
     Active Substance: PALBOCICLIB
     Dosage: 125 MG, QHS 21 DAYS ON AND 7 DAYS OFF
     Route: 048
     Dates: start: 201811
  3. LETROZOLE. [Concomitant]
     Active Substance: LETROZOLE
     Dosage: UNK
  4. IBRANCE [Suspect]
     Active Substance: PALBOCICLIB
     Indication: BREAST CANCER METASTATIC
     Dosage: 125 MG, QHS 21 DAYS ON AND 7 DAYS OFF
     Route: 048
     Dates: start: 2016
  5. FASLODEX [Concomitant]
     Active Substance: FULVESTRANT
     Dosage: UNK UNK, QMO
     Route: 042

REACTIONS (4)
  - Intestinal ischaemia [Unknown]
  - Cognitive disorder [Not Recovered/Not Resolved]
  - Stress [Not Recovered/Not Resolved]
  - Arthritis [Not Recovered/Not Resolved]

NARRATIVE: CASE EVENT DATE: 2018
